FAERS Safety Report 11414781 (Version 2)
Quarter: 2018Q4

REPORT INFORMATION
  Report Type: Spontaneous
  Country: US (occurrence: US)
  Receive Date: 20150825
  Receipt Date: 20181210
  Transmission Date: 20190204
  Serious: Yes (Other)
  Sender: FDA-Public Use
  Company Number: US-TEVA-588825ACC

PATIENT
  Sex: Female

DRUGS (1)
  1. AFTERA [Suspect]
     Active Substance: LEVONORGESTREL
     Indication: POST COITAL CONTRACEPTION
     Dates: start: 2015, end: 2015

REACTIONS (4)
  - Menstruation irregular [Unknown]
  - Pregnancy after post coital contraception [Unknown]
  - Vaginal discharge [Not Recovered/Not Resolved]
  - Maternal exposure before pregnancy [Unknown]
